FAERS Safety Report 5216541-3 (Version None)
Quarter: 2007Q1

REPORT INFORMATION
  Report Type: 
  Country: None (occurrence: None)
  Receive Date: 20070118
  Receipt Date: 20070111
  Transmission Date: 20070707
  Serious: Yes (Hospitalization)
  Sender: FDA-Public Use
  Company Number: GXKR2007US00721

PATIENT
  Age: 71 Year
  Sex: Male

DRUGS (5)
  1. DEXAMETHASONE [Suspect]
     Indication: MULTIPLE MYELOMA
     Dosage: 40 MG, DAYS 1-4, 9 2, 17-20
  2. THALIDOMIDE [Suspect]
     Indication: MULTIPLE MYELOMA
     Dosage: 100 MG, QHS
  3. DARBEPOETIN ALFA [Concomitant]
  4. ZOLEDRONIC ACID [Concomitant]
  5. WARFARIN SODIUM [Concomitant]

REACTIONS (6)
  - ANURIA [None]
  - GENERALISED OEDEMA [None]
  - HAEMODIALYSIS [None]
  - MENTAL IMPAIRMENT [None]
  - RENAL FAILURE ACUTE [None]
  - TUMOUR LYSIS SYNDROME [None]
